FAERS Safety Report 19888334 (Version 1)
Quarter: 2021Q3

REPORT INFORMATION
  Report Type: Spontaneous
  Country: US (occurrence: US)
  Receive Date: 20210927
  Receipt Date: 20210927
  Transmission Date: 20211014
  Serious: Yes (Hospitalization)
  Sender: FDA-Public Use
  Company Number: None

PATIENT
  Age: 61 Year
  Sex: Female
  Weight: 55.8 kg

DRUGS (6)
  1. VITAMIN C [Concomitant]
     Active Substance: ASCORBIC ACID
  2. KRILL OIL [Concomitant]
     Active Substance: DIETARY SUPPLEMENT\KRILL OIL
  3. EVENITY [Concomitant]
     Active Substance: ROMOSOZUMAB-AQQG
  4. VITAMIN D [Concomitant]
     Active Substance: VITAMIN D NOS
  5. ZINC. [Concomitant]
     Active Substance: ZINC
  6. PROLIA [Suspect]
     Active Substance: DENOSUMAB
     Indication: OSTEOPENIA
     Route: 058

REACTIONS (2)
  - Spinal fracture [None]
  - Drug ineffective [None]

NARRATIVE: CASE EVENT DATE: 20210702
